FAERS Safety Report 5444480-1 (Version None)
Quarter: 2007Q3

REPORT INFORMATION
  Report Type: 
  Country: None (occurrence: None)
  Receive Date: 20070906
  Receipt Date: 20070829
  Transmission Date: 20080115
  Serious: Yes (Hospitalization)
  Sender: FDA-Public Use
  Company Number: CH-JNJFOC-20070805912

PATIENT
  Age: 95 Year
  Sex: Male

DRUGS (2)
  1. TAVANIC [Suspect]
     Indication: URINARY TRACT INFECTION
     Route: 048
     Dates: start: 20070714, end: 20070716
  2. CIPROXIN [Suspect]
     Indication: URINARY TRACT INFECTION
     Route: 048

REACTIONS (2)
  - AGGRESSION [None]
  - CONFUSIONAL STATE [None]
